FAERS Safety Report 7093238-9 (Version None)
Quarter: 2010Q4

REPORT INFORMATION
  Report Type: 
  Country: None (occurrence: None)
  Receive Date: 20101110
  Receipt Date: 20101101
  Transmission Date: 20110411
  Serious: Yes (Hospitalization)
  Sender: FDA-Public Use
  Company Number: SE-BAYER-201044448GPV

PATIENT
  Age: 63 Year
  Sex: Female
  Weight: 65 kg

DRUGS (8)
  1. NEXAVAR [Suspect]
     Indication: HEPATIC NEOPLASM MALIGNANT
     Route: 048
     Dates: start: 20100113, end: 20101028
  2. AZATHIOPRIN [Concomitant]
     Indication: AUTOIMMUNE HEPATITIS
     Route: 048
     Dates: start: 20050902
  3. DIMETIKON [Concomitant]
     Route: 048
     Dates: start: 20060419
  4. FOLSYRA [Concomitant]
     Indication: AUTOIMMUNE HEPATITIS
     Route: 048
     Dates: start: 20040927
  5. PREDNISOLON [Concomitant]
     Indication: AUTOIMMUNE HEPATITIS
     Route: 048
     Dates: start: 20040927
  6. RISEDRONSYRA [Concomitant]
     Route: 048
     Dates: start: 20060130
  7. SPIRONOLACTONE [Concomitant]
     Route: 048
     Dates: start: 20050902
  8. WARFARIN SODIUM [Concomitant]
     Route: 048
     Dates: start: 20020807, end: 20101013

REACTIONS (3)
  - DIZZINESS [None]
  - FALL [None]
  - FATIGUE [None]
